FAERS Safety Report 19946510 (Version 1)
Quarter: 2021Q4

REPORT INFORMATION
  Report Type: Spontaneous
  Country: US (occurrence: US)
  Receive Date: 20211013
  Receipt Date: 20211013
  Transmission Date: 20220303
  Serious: No
  Sender: FDA-Public Use
  Company Number: US-SA-SAC20211008000224

PATIENT
  Sex: Female

DRUGS (11)
  1. AUBAGIO [Suspect]
     Active Substance: TERIFLUNOMIDE
     Indication: Multiple sclerosis
     Dosage: 14 MG, QD
     Route: 048
     Dates: start: 202007
  2. LUNESTA [Concomitant]
     Active Substance: ESZOPICLONE
     Dosage: 200 MG
  3. PROVIGIL [Concomitant]
     Active Substance: MODAFINIL
     Dosage: 2 MG
  4. LOSARTAN POTASSIUM [Concomitant]
     Active Substance: LOSARTAN POTASSIUM
     Dosage: 20 MG
  5. BACLOFEN [Concomitant]
     Active Substance: BACLOFEN
     Indication: Multiple sclerosis
     Dosage: 100 MG
  6. DONEPEZIL [Concomitant]
     Active Substance: DONEPEZIL
     Dosage: 10 MG
  7. AMLODIPINE BESYLATE [Concomitant]
     Active Substance: AMLODIPINE BESYLATE
     Dosage: 10 MG
  8. CLONIDINE [Concomitant]
     Active Substance: CLONIDINE
     Dosage: 2 MG
  9. ENOXAPARIN SODIUM [Concomitant]
     Active Substance: ENOXAPARIN SODIUM
     Dosage: 2 MG
  10. GABAPENTIN [Concomitant]
     Active Substance: GABAPENTIN
     Dosage: 2 MG
  11. ABILIFY [Concomitant]
     Active Substance: ARIPIPRAZOLE
     Dosage: 2 MG

REACTIONS (3)
  - Tremor [Unknown]
  - Vision blurred [Unknown]
  - Intentional dose omission [Unknown]
